FAERS Safety Report 25750873 (Version 1)
Quarter: 2025Q3

REPORT INFORMATION
  Report Type: Spontaneous
  Country: US (occurrence: None)
  Receive Date: 20250830
  Receipt Date: 20250830
  Transmission Date: 20251020
  Serious: Yes (Disabling, Other)
  Sender: FDA-CTU
  Company Number: None

PATIENT
  Age: 50 Year
  Sex: Female
  Weight: 58.5 kg

DRUGS (3)
  1. PREDNISONE [Suspect]
     Active Substance: PREDNISONE
     Indication: Colitis ulcerative
     Dates: start: 20250515, end: 20250809
  2. AMJEVITA [Suspect]
     Active Substance: ADALIMUMAB-ATTO
  3. ENTYVIO [Suspect]
     Active Substance: VEDOLIZUMAB

REACTIONS (6)
  - Osteoporosis [None]
  - Lupus-like syndrome [None]
  - Malnutrition [None]
  - Back pain [None]
  - Dyspnoea [None]
  - Musculoskeletal disorder [None]

NARRATIVE: CASE EVENT DATE: 20250515
